FAERS Safety Report 5098551-2 (Version None)
Quarter: 2006Q3

REPORT INFORMATION
  Report Type: 
  Country: None (occurrence: None)
  Receive Date: 20060906
  Receipt Date: 20060301
  Transmission Date: 20061208
  Serious: No
  Sender: FDA-Public Use
  Company Number: US-GLAXOSMITHKLINE-A0595716A

PATIENT
  Age: 80 Year
  Sex: Male

DRUGS (5)
  1. REQUIP [Suspect]
     Indication: RESTLESS LEGS SYNDROME
     Dosage: .25MG AT NIGHT
     Route: 048
     Dates: start: 20051201
  2. NORVASC [Concomitant]
  3. DIOVAN [Concomitant]
  4. ZOCOR [Concomitant]
  5. DICLOFENAC [Concomitant]

REACTIONS (2)
  - ASTHENIA [None]
  - MEMORY IMPAIRMENT [None]
